FAERS Safety Report 7389770-0 (Version None)
Quarter: 2011Q1

REPORT INFORMATION
  Report Type: 
  Country: None (occurrence: None)
  Receive Date: 20110323
  Receipt Date: 20110311
  Transmission Date: 20110831
  Serious: Yes (Hospitalization, Disabling, Other)
  Sender: FDA-Public Use
  Company Number: 2010SP040550

PATIENT
  Age: 36 Year
  Sex: Female
  Weight: 86.1834 kg

DRUGS (5)
  1. LEXAPRO [Suspect]
     Indication: ANXIETY
  2. ADVIL LIQUI-GELS [Concomitant]
  3. MARIJUANA [Concomitant]
  4. NUVARING [Suspect]
     Indication: CONTRACEPTION
     Dates: start: 20070810, end: 20080814
  5. DILANTIN [Suspect]
     Indication: CONVULSION

REACTIONS (34)
  - SINUS DISORDER [None]
  - OLIGOMENORRHOEA [None]
  - NAUSEA [None]
  - PROTEIN C DECREASED [None]
  - DEPRESSION [None]
  - HEAD INJURY [None]
  - SCOTOMA [None]
  - DYSMENORRHOEA [None]
  - SINUS CONGESTION [None]
  - PARAESTHESIA [None]
  - HYPOAESTHESIA FACIAL [None]
  - PAROSMIA [None]
  - CEREBROVASCULAR ACCIDENT [None]
  - CEREBRAL HAEMORRHAGE [None]
  - CHOLELITHIASIS [None]
  - INSOMNIA [None]
  - CEREBRAL VENTRICLE DILATATION [None]
  - CONVULSION [None]
  - VASOGENIC CEREBRAL OEDEMA [None]
  - TRANSIENT ISCHAEMIC ATTACK [None]
  - FATIGUE [None]
  - PROTHROMBIN TIME SHORTENED [None]
  - TRANSVERSE SINUS THROMBOSIS [None]
  - LIBIDO DECREASED [None]
  - INTERNATIONAL NORMALISED RATIO DECREASED [None]
  - POST-TRAUMATIC STRESS DISORDER [None]
  - WHITE BLOOD CELL COUNT INCREASED [None]
  - INTRACRANIAL VENOUS SINUS THROMBOSIS [None]
  - ACTIVATED PARTIAL THROMBOPLASTIN TIME PROLONGED [None]
  - BRAIN MIDLINE SHIFT [None]
  - CEREBROVASCULAR ARTERIOVENOUS MALFORMATION [None]
  - HEPATIC ENZYME INCREASED [None]
  - DISTURBANCE IN ATTENTION [None]
  - BLOOD BICARBONATE DECREASED [None]
